FAERS Safety Report 4901767-6 (Version None)
Quarter: 2006Q1

REPORT INFORMATION
  Report Type: 
  Country: None (occurrence: None)
  Receive Date: 20060201
  Receipt Date: 20060201
  Transmission Date: 20060701
  Serious: Yes (Other)
  Sender: FDA-Public Use
  Company Number: None

PATIENT
  Sex: Male
  Weight: 118.3888 kg

DRUGS (11)
  1. CRESTOR [Suspect]
     Indication: DYSLIPIDAEMIA
     Dosage: 10MG PO DAILY
     Route: 048
  2. HYTRIN [Concomitant]
  3. ASPIRIN [Concomitant]
  4. PRILOSEC [Concomitant]
  5. NAPROXEN [Concomitant]
  6. M.V.I. [Concomitant]
  7. TOPROL-XL [Concomitant]
  8. HYDRALAZINE [Concomitant]
  9. LISINOPRIL AND HYDROCHLOROTHIAZIDE [Concomitant]
  10. PLENDIL [Concomitant]
  11. TEMAZEPAM [Concomitant]

REACTIONS (1)
  - RHABDOMYOLYSIS [None]
